FAERS Safety Report 7973447-4 (Version None)
Quarter: 2011Q4

REPORT INFORMATION
  Report Type: 
  Country: None (occurrence: None)
  Receive Date: 20111213
  Receipt Date: 20111205
  Transmission Date: 20120403
  Serious: Yes (Other)
  Sender: FDA-Public Use
  Company Number: TR-ABBOTT-11P-161-0876595-00

PATIENT
  Age: 60 Year
  Sex: Female
  Weight: 70 kg

DRUGS (1)
  1. TARKA [Suspect]
     Indication: HYPERTENSION
     Dosage: 180/2MG DAILY
     Route: 048
     Dates: end: 20111121

REACTIONS (4)
  - ASTHENIA [None]
  - DYSPNOEA [None]
  - CYANOSIS [None]
  - HYPOTENSION [None]
